FAERS Safety Report 9899340 (Version 2)
Quarter: 2014Q1

REPORT INFORMATION
  Report Type: Spontaneous
  Country: JP (occurrence: JP)
  Receive Date: 20140214
  Receipt Date: 20140220
  Transmission Date: 20141002
  Serious: Yes (Other)
  Sender: FDA-Public Use
  Company Number: JP-PFIZER INC-2014041654

PATIENT
  Age: 7 Month
  Sex: 0

DRUGS (1)
  1. CORTRIL [Suspect]
     Dosage: UNK
     Route: 048

REACTIONS (2)
  - Overdose [Unknown]
  - Blood glucose increased [Unknown]
